FAERS Safety Report 20440247 (Version 1)
Quarter: 2022Q1

REPORT INFORMATION
  Report Type: Spontaneous
  Country: AE (occurrence: None)
  Receive Date: 20220206
  Receipt Date: 20220206
  Transmission Date: 20220423
  Serious: Yes (Other)
  Sender: FDA-Public Use
  Company Number: None

PATIENT
  Age: 3 Month
  Sex: Female
  Weight: 6 kg

DRUGS (1)
  1. HOMEOPATHICS [Suspect]
     Active Substance: HOMEOPATHICS
     Indication: Gingival pain
     Dates: start: 20220203, end: 20220206

REACTIONS (2)
  - Somnolence [None]
  - Decreased appetite [None]

NARRATIVE: CASE EVENT DATE: 20220206
